FAERS Safety Report 7650384-6 (Version None)
Quarter: 2011Q3

REPORT INFORMATION
  Report Type: 
  Country: None (occurrence: None)
  Receive Date: 20110727
  Receipt Date: 20110712
  Transmission Date: 20111222
  Serious: Yes (Life-Threatening)
  Sender: FDA-Public Use
  Company Number: TCI2011A03750

PATIENT
  Age: 67 Year
  Sex: Male

DRUGS (8)
  1. AMARYL [Concomitant]
  2. JANUVIA [Concomitant]
  3. LIPITOR [Concomitant]
  4. FAMOTIDINE [Concomitant]
  5. ACETYLSALICYLIC ACID SRT [Concomitant]
  6. ACTOS [Suspect]
     Indication: TYPE 2 DIABETES MELLITUS
     Dosage: 15 MG (15 MG, 1 IN 1 D) 30 MG (30 MG, 1 IN 1 D) 30 MG (30 MG, 1 IN 1 D)
     Route: 048
     Dates: start: 20090423, end: 20110615
  7. ACTOS [Suspect]
     Indication: TYPE 2 DIABETES MELLITUS
     Dosage: 15 MG (15 MG, 1 IN 1 D) 30 MG (30 MG, 1 IN 1 D) 30 MG (30 MG, 1 IN 1 D)
     Route: 048
     Dates: start: 20060503, end: 20090107
  8. ACTOS [Suspect]
     Indication: TYPE 2 DIABETES MELLITUS
     Dosage: 15 MG (15 MG, 1 IN 1 D) 30 MG (30 MG, 1 IN 1 D) 30 MG (30 MG, 1 IN 1 D)
     Route: 048
     Dates: start: 20060306, end: 20060502

REACTIONS (3)
  - CHEST PAIN [None]
  - HAEMATURIA [None]
  - BLADDER CANCER [None]
